FAERS Safety Report 9179095 (Version 1)
Quarter: 2012Q4

REPORT INFORMATION
  Report Type: 
  Country: FI (occurrence: FI)
  Receive Date: 20121029
  Receipt Date: 20121029
  Transmission Date: 20130627
  Serious: Yes (Other)
  Sender: FDA-Public Use
  Company Number: FI-JNJFOC-20121010822

PATIENT
  Sex: Male

DRUGS (2)
  1. ZYTIGA [Suspect]
     Indication: PROSTATE CANCER
     Dates: start: 20121017
  2. ZYTIGA [Suspect]
     Indication: PROSTATE CANCER
     Dates: start: 20121006

REACTIONS (1)
  - Haemoglobin decreased [Not Recovered/Not Resolved]
